FAERS Safety Report 4972807-3 (Version None)
Quarter: 2006Q2

REPORT INFORMATION
  Report Type: 
  Country: None (occurrence: None)
  Receive Date: 20060414
  Receipt Date: 20060323
  Transmission Date: 20061013
  Serious: Yes (Other)
  Sender: FDA-Public Use
  Company Number: PHEH2006US03924

PATIENT
  Age: 61 Year
  Sex: Female
  Weight: 68.48 kg

DRUGS (8)
  1. ZELNORM [Suspect]
     Indication: IRRITABLE BOWEL SYNDROME
     Dosage: 6 MG, BID
     Route: 048
     Dates: start: 20040225, end: 20040701
  2. ZELNORM [Suspect]
     Dosage: 6 MG, BID
     Route: 048
     Dates: start: 20050221, end: 20060101
  3. ZELNORM [Suspect]
     Dosage: 6 MG, BID
     Route: 048
     Dates: start: 20060301, end: 20060316
  4. CYMBALTA [Concomitant]
     Dosage: 60 MG, UNK
  5. TRIAMTERENE AND HYDROCHLOROTHIAZID ^HARRIS^ [Concomitant]
     Dosage: 32.5/25 MG
  6. CLONOPIN [Concomitant]
  7. LEVSIN [Concomitant]
     Dosage: 0.125 UNK, PRN
  8. MIRALAX [Concomitant]

REACTIONS (11)
  - ABDOMINAL PAIN LOWER [None]
  - CHILLS [None]
  - COLITIS ISCHAEMIC [None]
  - DIVERTICULITIS [None]
  - DIVERTICULUM [None]
  - DRUG INEFFECTIVE [None]
  - ERYTHEMA [None]
  - HAEMATOCHEZIA [None]
  - MUCOSAL INFLAMMATION [None]
  - PYREXIA [None]
  - WHITE BLOOD CELL COUNT INCREASED [None]
